FAERS Safety Report 4896307-4 (Version None)
Quarter: 2006Q1

REPORT INFORMATION
  Report Type: 
  Country: None (occurrence: None)
  Receive Date: 20060131
  Receipt Date: 20060120
  Transmission Date: 20060701
  Serious: Yes (Death)
  Sender: FDA-Public Use
  Company Number: US-JNJFOC-20051204281

PATIENT
  Sex: Male

DRUGS (3)
  1. RISPERDAL [Suspect]
     Dosage: AT BEDTIME (HS)
     Route: 048
     Dates: start: 20051208, end: 20051209
  2. DIAVAN [Concomitant]
  3. ARTANE [Concomitant]
     Indication: DRUG USE FOR UNKNOWN INDICATION

REACTIONS (9)
  - ABASIA [None]
  - AGITATION [None]
  - COORDINATION ABNORMAL [None]
  - DYSKINESIA [None]
  - DYSPNOEA [None]
  - HEART RATE INCREASED [None]
  - HYPERTENSION [None]
  - PYREXIA [None]
  - RESPIRATORY ARREST [None]
